FAERS Safety Report 15096534 (Version 1)
Quarter: 2018Q3

REPORT INFORMATION
  Report Type: Spontaneous
  Country: CZ (occurrence: CZ)
  Receive Date: 20180702
  Receipt Date: 20180702
  Transmission Date: 20181010
  Serious: Yes (Other)
  Sender: FDA-Public Use
  Company Number: PHHY2018CZ030056

PATIENT
  Age: 48 Year
  Sex: Male

DRUGS (2)
  1. VOTRIENT [Suspect]
     Active Substance: PAZOPANIB HYDROCHLORIDE
     Indication: SOFT TISSUE SARCOMA
     Dosage: 400 MG, QD
     Route: 065
     Dates: start: 20141216
  2. VOTRIENT [Suspect]
     Active Substance: PAZOPANIB HYDROCHLORIDE
     Dosage: 800 MG, QD
     Route: 065

REACTIONS (5)
  - Soft tissue sarcoma [Recovering/Resolving]
  - Abdominal lymphadenopathy [Recovering/Resolving]
  - Metastases to peritoneum [Recovering/Resolving]
  - Malignant neoplasm progression [Recovering/Resolving]
  - Hair colour changes [Unknown]

NARRATIVE: CASE EVENT DATE: 20180115
